FAERS Safety Report 23893833 (Version 1)
Quarter: 2024Q2

REPORT INFORMATION
  Report Type: Spontaneous
  Country: US (occurrence: None)
  Receive Date: 20240524
  Receipt Date: 20240524
  Transmission Date: 20240716
  Serious: No
  Sender: FDA-Public Use
  Company Number: US-ROCHE-3429310

PATIENT
  Sex: Female
  Weight: 87.622 kg

DRUGS (10)
  1. ACTEMRA [Suspect]
     Active Substance: TOCILIZUMAB
     Indication: Giant cell arteritis
     Dosage: 2 PENS A MONTH
     Route: 058
     Dates: start: 202209
  2. ACTEMRA [Suspect]
     Active Substance: TOCILIZUMAB
  3. PREDNISONE [Concomitant]
     Active Substance: PREDNISONE
     Indication: Red blood cell sedimentation rate increased
     Dates: start: 202208
  4. PREDNISONE [Concomitant]
     Active Substance: PREDNISONE
     Dates: end: 202308
  5. PREDNISONE [Concomitant]
     Active Substance: PREDNISONE
  6. PREDNISONE [Concomitant]
     Active Substance: PREDNISONE
  7. HUMALOG KWIKPEN [Concomitant]
     Active Substance: INSULIN LISPRO
     Indication: Diabetes mellitus
  8. LANTUS SOLOSTAR [Concomitant]
     Active Substance: INSULIN GLARGINE
     Indication: Diabetes mellitus
  9. METFORMIN [Concomitant]
     Active Substance: METFORMIN HYDROCHLORIDE
     Indication: Diabetes mellitus
     Dosage: 500MG IN THE MORNING AND AGAIN AT SUPPER TIME
  10. TRULICITY [Concomitant]
     Active Substance: DULAGLUTIDE
     Dates: end: 2023

REACTIONS (12)
  - Urinary tract infection [Recovered/Resolved]
  - Abdominal pain upper [Unknown]
  - Burning sensation [Recovered/Resolved]
  - Fatigue [Unknown]
  - Back pain [Recovered/Resolved]
  - Dyspnoea [Recovered/Resolved]
  - Weight increased [Unknown]
  - Inflammation [Unknown]
  - Tendonitis [Unknown]
  - Product communication issue [Unknown]
  - Drug delivery system issue [Unknown]
  - Product complaint [Unknown]

NARRATIVE: CASE EVENT DATE: 20230101
